FAERS Safety Report 8345079-X (Version None)
Quarter: 2012Q2

REPORT INFORMATION
  Report Type: 
  Country: None (occurrence: None)
  Receive Date: 20120504
  Receipt Date: 20120424
  Transmission Date: 20120825
  Serious: Yes (Death)
  Sender: FDA-Public Use
  Company Number: US-2012-10482

PATIENT
  Age: 56 Year
  Sex: Female

DRUGS (6)
  1. SIROLIMUS (RAPAMUNE) [Suspect]
     Dosage: 12;4 MG MILLOIGRAM(S) DAILY DOSE, ORAL
     Route: 048
  2. BUSULFEX (B8US8ULFAN) INJECTION [Suspect]
     Indication: CHRONIC MYELOMONOCYTIC LEUKAEMIA
     Dosage: 1 MG/KG, EVERY 6 HOURS, INTRAVENOUS
     Route: 042
  3. CYCLOPHOSPHAMIDE [Suspect]
     Dosage: 45 MG/KG, DAILY DOSE, INTRAVENOUS
     Route: 042
  4. ETOPOSIDE [Suspect]
     Dosage: 60 MG/KG, DAILY DOSE, INTRAVENOUS
     Route: 042
  5. SOLU-MEDROL [Concomitant]
  6. MYCOPHENOLATE MOFETIL [Suspect]
     Dosage: 15 MG MILLIGRAM(S), DAILY DOSE, INTRAVENOUS
     Route: 042

REACTIONS (6)
  - SEPSIS [None]
  - STEM CELL TRANSPLANT [None]
  - LARGE INTESTINAL ULCER [None]
  - ACUTE GRAFT VERSUS HOST DISEASE IN SKIN [None]
  - LARGE INTESTINE PERFORATION [None]
  - IMPAIRED HEALING [None]
